FAERS Safety Report 19483507 (Version 1)
Quarter: 2021Q3

REPORT INFORMATION
  Report Type: Spontaneous
  Country: CA (occurrence: CA)
  Receive Date: 20210701
  Receipt Date: 20210701
  Transmission Date: 20211014
  Serious: Yes (Other)
  Sender: FDA-Public Use
  Company Number: CA-PFIZER INC-2021734412

PATIENT
  Age: 40 Year
  Sex: Female
  Weight: 65 kg

DRUGS (7)
  1. VITAMIN D2 OLEOSA [Concomitant]
     Dosage: UNK, WEEKLY
  2. VITAMIN D NOS [Concomitant]
     Active Substance: VITAMIN D NOS
     Dosage: UNK, DAILY
     Route: 048
  3. FLEXERIL [Concomitant]
     Active Substance: CYCLOBENZAPRINE HYDROCHLORIDE
     Dosage: 10 MG
  4. VITAMIN D3 [Concomitant]
     Active Substance: CHOLECALCIFEROL
     Dosage: 25 UG
  5. TYLENOL [Concomitant]
     Active Substance: ACETAMINOPHEN
     Dosage: 500, AS NEEDED
  6. METHOTREXATE SODIUM. [Suspect]
     Active Substance: METHOTREXATE SODIUM
     Dosage: 10 MG
     Dates: start: 20140214, end: 20140226
  7. METHOTREXATE SODIUM. [Suspect]
     Active Substance: METHOTREXATE SODIUM
     Dosage: 5 MG
     Dates: start: 2015, end: 2015

REACTIONS (6)
  - Pyrexia [Unknown]
  - Eye swelling [Unknown]
  - Lip swelling [Unknown]
  - Oral discomfort [Unknown]
  - Stomatitis [Unknown]
  - Angioedema [Unknown]
